FAERS Safety Report 10301305 (Version 1)
Quarter: 2014Q3

REPORT INFORMATION
  Report Type: Spontaneous
  Country: US (occurrence: None)
  Receive Date: 20140708
  Receipt Date: 20140708
  Transmission Date: 20150326
  Serious: Yes (Other)
  Sender: FDA-Public Use
  Company Number: 2014ELT00001

PATIENT
  Age: 44 Year
  Sex: Female

DRUGS (2)
  1. NALTREXONE (NALTREXONE) [Suspect]
     Active Substance: NALTREXONE
     Indication: CONSTIPATION
     Route: 048
  2. MORPHINE [Suspect]
     Active Substance: MORPHINE
     Indication: FIBROMYALGIA
     Route: 048

REACTIONS (10)
  - Fatigue [None]
  - Metabolic alkalosis [None]
  - Myalgia [None]
  - Abdominal pain [None]
  - Diarrhoea [None]
  - Respiratory alkalosis [None]
  - Nausea [None]
  - Hyperhidrosis [None]
  - Drug withdrawal syndrome [None]
  - Vomiting [None]
